FAERS Safety Report 14249438 (Version 1)
Quarter: 2017Q4

REPORT INFORMATION
  Report Type: Spontaneous
  Country: US (occurrence: US)
  Receive Date: 20171204
  Receipt Date: 20171204
  Transmission Date: 20180321
  Serious: Yes (Hospitalization)
  Sender: FDA-Public Use
  Company Number: US-INGENUS PHARMACEUTICALS NJ, LLC-ING201711-000619

PATIENT
  Age: 61 Year
  Sex: Female

DRUGS (2)
  1. CARISOPRODOL AND ASPIRIN [Suspect]
     Active Substance: ASPIRIN\CARISOPRODOL
  2. PRASUGREL. [Suspect]
     Active Substance: PRASUGREL

REACTIONS (4)
  - Dyspnoea [Recovered/Resolved]
  - Haemoglobin decreased [Unknown]
  - Haemothorax [Recovered/Resolved]
  - Chest pain [Unknown]
